FAERS Safety Report 19298673 (Version 1)
Quarter: 2021Q2

REPORT INFORMATION
  Report Type: Spontaneous
  Country: IE (occurrence: IE)
  Receive Date: 20210525
  Receipt Date: 20210525
  Transmission Date: 20210717
  Serious: Yes (Hospitalization, Other)
  Sender: FDA-Public Use
  Company Number: IE-ALKEM LABORATORIES LIMITED-IE-ALKEM-2021-02841

PATIENT
  Age: 30 Year
  Sex: Female

DRUGS (2)
  1. LANSOPRAZOLE. [Suspect]
     Active Substance: LANSOPRAZOLE
     Indication: PRODUCT USED FOR UNKNOWN INDICATION
     Dosage: 630 MILLIGRAM
     Route: 065
  2. THEOPHYLLINE [Suspect]
     Active Substance: THEOPHYLLINE ANHYDROUS
     Indication: ASTHMA
     Dosage: 12.6 GRAM
     Route: 065

REACTIONS (11)
  - Hyperhidrosis [Unknown]
  - Metabolic acidosis [Unknown]
  - Nausea [Unknown]
  - Abdominal pain [Unknown]
  - Intentional overdose [Unknown]
  - Status epilepticus [Unknown]
  - Vomiting [Unknown]
  - Amnesia [Unknown]
  - Respiratory acidosis [Unknown]
  - Dizziness [Unknown]
  - Sinus tachycardia [Unknown]
